FAERS Safety Report 6898358-7 (Version None)
Quarter: 2010Q3

REPORT INFORMATION
  Report Type: 
  Country: None (occurrence: None)
  Receive Date: 20100802
  Receipt Date: 20071010
  Transmission Date: 20110219
  Serious: No
  Sender: FDA-Public Use
  Company Number: US-PFIZER INC-2007085744

PATIENT
  Sex: Female
  Weight: 72.7 kg

DRUGS (4)
  1. LYRICA [Suspect]
     Indication: BACK DISORDER
     Route: 048
     Dates: start: 20071001
  2. LYRICA [Suspect]
     Indication: FIBROMYALGIA
  3. ANALGESICS [Concomitant]
  4. SOMA [Concomitant]

REACTIONS (1)
  - INSOMNIA [None]
